FAERS Safety Report 7550292-5 (Version None)
Quarter: 2011Q2

REPORT INFORMATION
  Report Type: 
  Country: None (occurrence: None)
  Receive Date: 20110615
  Receipt Date: 20110601
  Transmission Date: 20111010
  Serious: Yes (Other)
  Sender: FDA-Public Use
  Company Number: PL-UCBSA-034720

PATIENT
  Age: 33 Year
  Sex: Male

DRUGS (3)
  1. LAMITRIN [Concomitant]
  2. LAMITRIN [Concomitant]
     Dosage: 200-150 MG
  3. KEPPRA [Suspect]

REACTIONS (5)
  - SOCIAL AVOIDANT BEHAVIOUR [None]
  - PSYCHOMOTOR RETARDATION [None]
  - DIZZINESS [None]
  - APATHY [None]
  - DRUG INEFFECTIVE [None]
